FAERS Safety Report 11270604 (Version 3)
Quarter: 2016Q3

REPORT INFORMATION
  Report Type: Report from Study
  Country: MX (occurrence: MX)
  Receive Date: 20150714
  Receipt Date: 20160927
  Transmission Date: 20161109
  Serious: Yes (Other)
  Sender: FDA-Public Use
  Company Number: PHHY2015MX080155

PATIENT
  Age: 65 Year
  Sex: Female
  Weight: 55 kg

DRUGS (5)
  1. BIPROFENID [Suspect]
     Active Substance: KETOPROFEN
     Indication: ARTHRALGIA
     Dosage: 150 MG, QD (MORE THAN 10 YEARS)
     Route: 048
     Dates: end: 201601
  2. ARAVA [Concomitant]
     Active Substance: LEFLUNOMIDE
     Indication: PRODUCT USED FOR UNKNOWN INDICATION
     Route: 065
  3. DIOVAN [Suspect]
     Active Substance: VALSARTAN
     Indication: HYPERTENSION
     Dosage: 2 DF, QD(1 IN MORNING AND 1 AT NIGHT)
     Route: 065
  4. DIOVAN [Suspect]
     Active Substance: VALSARTAN
     Indication: CARDIOMEGALY
     Dosage: 1 DF, QD (MORE THAN 5 YEARS AGO)
     Route: 048
     Dates: end: 201601
  5. FOLIC ACID. [Concomitant]
     Active Substance: FOLIC ACID
     Indication: PRODUCT USED FOR UNKNOWN INDICATION
     Route: 065

REACTIONS (14)
  - Finger deformity [Unknown]
  - Bone erosion [Unknown]
  - Weight decreased [Unknown]
  - Fall [Unknown]
  - Anaemia [Recovering/Resolving]
  - Hypertension [Unknown]
  - Cartilage injury [Recovered/Resolved]
  - Memory impairment [Recovering/Resolving]
  - Toxicity to various agents [Recovered/Resolved]
  - Inappropriate schedule of drug administration [Unknown]
  - Diabetes mellitus [Unknown]
  - Acne [Recovered/Resolved]
  - Fear [Unknown]
  - Visual impairment [Unknown]

NARRATIVE: CASE EVENT DATE: 201601
